FAERS Safety Report 18410763 (Version 2)
Quarter: 2020Q4

REPORT INFORMATION
  Report Type: Spontaneous
  Country: US (occurrence: US)
  Receive Date: 20201021
  Receipt Date: 20201029
  Transmission Date: 20210114
  Serious: Yes (Other)
  Sender: FDA-Public Use
  Company Number: US-PFIZER INC-2020403277

PATIENT
  Age: 34 Year
  Sex: Male

DRUGS (15)
  1. EPINEPHRINE. [Suspect]
     Active Substance: EPINEPHRINE
     Indication: RENAL FAILURE
  2. DOBUTAMINE HCL [Suspect]
     Active Substance: DOBUTAMINE HYDROCHLORIDE
     Indication: RENAL FAILURE
     Dosage: UNK (PROLONGED HIGH DOSES)
  3. DOBUTAMINE HCL [Suspect]
     Active Substance: DOBUTAMINE HYDROCHLORIDE
     Indication: CARDIOMYOPATHY
  4. EPINEPHRINE. [Suspect]
     Active Substance: EPINEPHRINE
     Indication: CARDIOMYOPATHY
     Dosage: UNK (PROLONGED HIGH DOSES)
  5. NOREPINEPHRINE BITARTRATE. [Suspect]
     Active Substance: NOREPINEPHRINE BITARTRATE
     Indication: RENAL FAILURE
  6. DOBUTAMINE HCL [Suspect]
     Active Substance: DOBUTAMINE HYDROCHLORIDE
     Indication: ACUTE RESPIRATORY DISTRESS SYNDROME
  7. VASOPRESSIN. [Suspect]
     Active Substance: VASOPRESSIN
     Indication: RENAL FAILURE
  8. VASOPRESSIN. [Suspect]
     Active Substance: VASOPRESSIN
     Indication: ACUTE RESPIRATORY DISTRESS SYNDROME
  9. EPINEPHRINE. [Suspect]
     Active Substance: EPINEPHRINE
     Indication: ACUTE RESPIRATORY DISTRESS SYNDROME
  10. CLINDAMYCIN. [Concomitant]
     Active Substance: CLINDAMYCIN
     Indication: TOXIC SHOCK SYNDROME
     Dosage: UNK
  11. OSELTAMIVIR [Concomitant]
     Active Substance: OSELTAMIVIR
     Indication: PNEUMONIA
     Dosage: UNK
  12. ASCORBIC ACID. [Concomitant]
     Active Substance: ASCORBIC ACID
     Indication: PNEUMONIA
     Dosage: UNK
  13. NOREPINEPHRINE BITARTRATE. [Suspect]
     Active Substance: NOREPINEPHRINE BITARTRATE
     Indication: ACUTE RESPIRATORY DISTRESS SYNDROME
     Dosage: UNK (PROLONGED HIGH DOSES)
  14. NOREPINEPHRINE BITARTRATE. [Suspect]
     Active Substance: NOREPINEPHRINE BITARTRATE
     Indication: CARDIOMYOPATHY
  15. VASOPRESSIN. [Suspect]
     Active Substance: VASOPRESSIN
     Indication: CARDIOMYOPATHY
     Dosage: UNK (PROLONGED HIGH DOSES)

REACTIONS (3)
  - Rhabdomyolysis [Unknown]
  - Peripheral ischaemia [Unknown]
  - Dry gangrene [Unknown]
